FAERS Safety Report 6184174-0 (Version None)
Quarter: 2009Q2

REPORT INFORMATION
  Report Type: 
  Country: None (occurrence: None)
  Receive Date: 20090506
  Receipt Date: 20090506
  Transmission Date: 20091009
  Serious: Yes (Other)
  Sender: FDA-Public Use
  Company Number: None

PATIENT
  Age: 11 Year
  Sex: Female
  Weight: 67.9 kg

DRUGS (1)
  1. LEVETIRACETAM [Suspect]
     Indication: CONVULSION
     Dosage: 1000MG TWICE DAILY PO
     Route: 048
     Dates: start: 20090305, end: 20090505

REACTIONS (4)
  - AFFECTIVE DISORDER [None]
  - CONVULSION [None]
  - PRODUCT SUBSTITUTION ISSUE [None]
  - UPPER LIMB FRACTURE [None]
